FAERS Safety Report 14470217 (Version 2)
Quarter: 2018Q4

REPORT INFORMATION
  Report Type: Other
  Country: US (occurrence: US)
  Receive Date: 20180131
  Receipt Date: 20181115
  Transmission Date: 20190204
  Serious: Yes (Disabling, Other)
  Sender: FDA-Public Use
  Company Number: US-ACORDA-ACO_142678_2017

PATIENT
  Age: 68 Year
  Sex: Female

DRUGS (3)
  1. AMPYRA [Suspect]
     Active Substance: DALFAMPRIDINE
     Dosage: 10 MG, QD
     Route: 048
  2. AMPYRA [Suspect]
     Active Substance: DALFAMPRIDINE
     Indication: MULTIPLE SCLEROSIS
     Dosage: 10 MG, BID
     Route: 048
     Dates: end: 201612
  3. AMPYRA [Suspect]
     Active Substance: DALFAMPRIDINE
     Dosage: 10 MG, BID
     Route: 048
     Dates: start: 20171002

REACTIONS (10)
  - Gait inability [Unknown]
  - Inappropriate schedule of product administration [Unknown]
  - Vasodilatation [Unknown]
  - Vein rupture [Unknown]
  - Pain [Unknown]
  - Therapy cessation [Unknown]
  - Therapy cessation [Recovered/Resolved]
  - Gait disturbance [Unknown]
  - Pain in extremity [Unknown]
  - Hot flush [Unknown]

NARRATIVE: CASE EVENT DATE: 201612
